FAERS Safety Report 8607728-8 (Version None)
Quarter: 2012Q3

REPORT INFORMATION
  Report Type: 
  Country: None (occurrence: None)
  Receive Date: 20120821
  Receipt Date: 20120814
  Transmission Date: 20120928
  Serious: Yes (Hospitalization)
  Sender: FDA-Public Use
  Company Number: US-PFIZER INC-2012194540

PATIENT
  Age: 68 Year
  Sex: Female
  Weight: 109 kg

DRUGS (12)
  1. TRAZODONE [Concomitant]
     Dosage: 150 MG, UNK
  2. GLUCOPHAGE [Concomitant]
     Dosage: 500 MG, DAILY
  3. AMBIEN [Concomitant]
     Dosage: 10 MG, DAILY
  4. LYRICA [Suspect]
     Indication: FIBROMYALGIA
     Dosage: 75 MG, 2X/DAY
     Dates: start: 20090101
  5. HYDROCODONE [Concomitant]
     Indication: FIBROMYALGIA
     Dosage: ONE TO TWO TABLETS AS NEEDED
     Route: 048
  6. CLONAZEPAM [Concomitant]
     Dosage: UNK
  7. ACCUPRIL [Concomitant]
     Indication: HYPERTENSION
     Dosage: 40 MG, UNK
  8. DICLOFENAC SODIUM [Concomitant]
     Dosage: 75 MG, 2X/DAY
  9. ZETIA [Concomitant]
     Dosage: 10 MG, DAILY
  10. WELCHOL [Concomitant]
     Dosage: 625 MG, DAILY
  11. TOPROL-XL [Concomitant]
     Indication: HYPERTENSION
     Dosage: 25 MG, 2X/DAY
  12. FLEXERIL [Concomitant]
     Dosage: 10 MG, AS NEEDED
     Route: 048

REACTIONS (4)
  - BLOOD CHOLESTEROL INCREASED [None]
  - MEDICATION ERROR [None]
  - BLOOD TRIGLYCERIDES INCREASED [None]
  - OSTEOARTHRITIS [None]
